FAERS Safety Report 20387555 (Version 1)
Quarter: 2022Q1

REPORT INFORMATION
  Report Type: Spontaneous
  Country: US (occurrence: US)
  Receive Date: 20220127
  Receipt Date: 20220127
  Transmission Date: 20220423
  Serious: No
  Sender: FDA-Public Use
  Company Number: US-ALLERGAN-2120001US

PATIENT
  Sex: Female

DRUGS (3)
  1. BOTOX COSMETIC [Suspect]
     Active Substance: ONABOTULINUMTOXINA
     Indication: Skin wrinkling
     Dosage: UNK UNK, SINGLE
     Dates: start: 20210513, end: 20210513
  2. BOTOX COSMETIC [Suspect]
     Active Substance: ONABOTULINUMTOXINA
     Indication: Skin wrinkling
     Dosage: UNK UNK, SINGLE
     Dates: start: 20210513, end: 20210513
  3. Unspescified Thyroid pill [Concomitant]
     Indication: Thyroid disorder

REACTIONS (6)
  - Facial pain [Recovering/Resolving]
  - Inflammation [Recovering/Resolving]
  - Skin discolouration [Recovering/Resolving]
  - Contusion [Recovering/Resolving]
  - Paranasal sinus discomfort [Recovering/Resolving]
  - Headache [Recovering/Resolving]

NARRATIVE: CASE EVENT DATE: 20210513
